FAERS Safety Report 24386230 (Version 1)
Quarter: 2024Q4

REPORT INFORMATION
  Report Type: Other
  Country: US (occurrence: US)
  Receive Date: 20241001
  Receipt Date: 20241001
  Transmission Date: 20250115
  Serious: Yes (Hospitalization, Other)
  Sender: NEUROCRINE BIOSCIENCES
  Company Number: US-NEUROCRINE BIOSCIENCES INC.-2024NBI07031

PATIENT
  Age: 58 Year
  Sex: Female

DRUGS (12)
  1. INGREZZA [Suspect]
     Active Substance: VALBENAZINE
     Indication: Tardive dyskinesia
     Dosage: 40 MILLIGRAM, QD
     Route: 048
     Dates: start: 20240520
  2. INGREZZA [Suspect]
     Active Substance: VALBENAZINE
     Dosage: 80 MILLIGRAM, QD
     Route: 048
     Dates: start: 20230601, end: 20240519
  3. INGREZZA [Suspect]
     Active Substance: VALBENAZINE
     Dosage: 60 MILLIGRAM, QD
     Route: 048
     Dates: start: 20220504, end: 20230531
  4. INGREZZA [Suspect]
     Active Substance: VALBENAZINE
     Dosage: 40 MILLIGRAM, QD
     Route: 048
     Dates: start: 20200717, end: 20220503
  5. AMLODIPINE [Concomitant]
     Active Substance: AMLODIPINE BESYLATE
  6. VITAMINS [Concomitant]
     Active Substance: VITAMINS
  7. CRESTOR [Concomitant]
     Active Substance: ROSUVASTATIN CALCIUM
  8. HYDROCHLOROTHIAZIDE [Concomitant]
     Active Substance: HYDROCHLOROTHIAZIDE
  9. LITHIUM [Concomitant]
     Active Substance: LITHIUM
  10. LORATADINE [Concomitant]
     Active Substance: LORATADINE
  11. MINERALS\VITAMINS [Concomitant]
     Active Substance: MINERALS\VITAMINS
  12. ZOLOFT [Concomitant]
     Active Substance: SERTRALINE HYDROCHLORIDE

REACTIONS (1)
  - Pancreatic carcinoma [Unknown]
